FAERS Safety Report 16844405 (Version 1)
Quarter: 2019Q4

REPORT INFORMATION
  Report Type: Spontaneous
  Country: US (occurrence: US)
  Receive Date: 20190923
  Receipt Date: 20190923
  Transmission Date: 20200122
  Serious: Yes (Hospitalization)
  Sender: FDA-Public Use
  Company Number: None

PATIENT
  Age: 36 Year
  Sex: Male
  Weight: 90 kg

DRUGS (1)
  1. HUMIRA [Suspect]
     Active Substance: ADALIMUMAB
     Indication: PSORIATIC ARTHROPATHY
     Dosage: ?          QUANTITY:1 INJECTION(S);OTHER FREQUENCY:ONCE A WEEK;?
     Route: 030

REACTIONS (9)
  - Asthenia [None]
  - Vomiting [None]
  - Feeling abnormal [None]
  - Heart rate increased [None]
  - Injection site pain [None]
  - Hyperhidrosis [None]
  - Syncope [None]
  - Unresponsive to stimuli [None]
  - Female sexual arousal disorder [None]

NARRATIVE: CASE EVENT DATE: 20190922
